FAERS Safety Report 12914088 (Version 1)
Quarter: 2016Q4

REPORT INFORMATION
  Report Type: Spontaneous
  Country: ES (occurrence: ES)
  Receive Date: 20161105
  Receipt Date: 20161105
  Transmission Date: 20170207
  Serious: Yes (Death, Hospitalization, Congenital Anomaly)
  Sender: FDA-Public Use
  Company Number: ES-ASTRAZENECA-2016SF14350

PATIENT
  Sex: Male

DRUGS (7)
  1. SYMBICORT [Suspect]
     Active Substance: BUDESONIDE\FORMOTEROL FUMARATE DIHYDRATE
     Indication: ASTHMA
     Dosage: LATENCY:YEARS
     Route: 064
     Dates: start: 20160212, end: 20160402
  2. DACORTIN [Concomitant]
     Active Substance: PREDNISONE
     Indication: ASTHMA PROPHYLAXIS
     Route: 064
     Dates: start: 20160407, end: 20160416
  3. AFLUON [Concomitant]
     Active Substance: AZELASTINE HYDROCHLORIDE
     Indication: CONJUNCTIVITIS ALLERGIC
     Dosage: LATENCY:YEARS
     Route: 064
     Dates: start: 20160212, end: 20160402
  4. FOLI-DOCE [Concomitant]
     Active Substance: CYANOCOBALAMIN\FOLIC ACID
     Indication: PREGNANCY
     Route: 064
     Dates: start: 20160308
  5. AVAMYS [Concomitant]
     Active Substance: FLUTICASONE FUROATE
     Indication: ASTHMA
     Dosage: LATENCY:YEARS
     Route: 064
     Dates: start: 20160212, end: 20160402
  6. CETIRIZINA ALMUS [Concomitant]
     Indication: ASTHMA
     Route: 064
     Dates: start: 20160212, end: 20160402
  7. AUGMENTINE [Concomitant]
     Active Substance: AMOXICILLIN\CLAVULANATE POTASSIUM
     Indication: ASTHMA PROPHYLAXIS
     Route: 064
     Dates: start: 20160407, end: 20160412

REACTIONS (4)
  - Tricuspid valve stenosis [Fatal]
  - Defect conduction intraventricular [Fatal]
  - Foetal exposure during pregnancy [Fatal]
  - Congenital pulmonary valve atresia [Fatal]

NARRATIVE: CASE EVENT DATE: 2016
